FAERS Safety Report 6269395-0 (Version None)
Quarter: 2009Q3

REPORT INFORMATION
  Report Type: 
  Country: None (occurrence: None)
  Receive Date: 20090713
  Receipt Date: 20090706
  Transmission Date: 20100115
  Serious: Yes (Death)
  Sender: FDA-Public Use
  Company Number: 318405

PATIENT
  Sex: Female

DRUGS (7)
  1. CARBOPLATIN [Suspect]
     Indication: NEPHROBLASTOMA
     Dosage: 500 MG/M2 EVERY 3 WEEKS,
  2. VINCRISTINE [Suspect]
     Indication: NEPHROBLASTOMA
  3. CYCLOPHOSPHAMIDE [Suspect]
     Indication: NEPHROBLASTOMA
     Dosage: 20 MG/KG,
  4. ETOPOSIDE [Suspect]
     Indication: NEPHROBLASTOMA
     Dosage: 150 MG/M2,
  5. IFOSFAMIDE [Suspect]
     Indication: NEPHROBLASTOMA
  6. ADRIAMYCIN PFS [Suspect]
     Indication: NEPHROBLASTOMA
  7. (THERAPEUTIC RADIOPHARMACEUTICALS) [Concomitant]

REACTIONS (10)
  - ANURIA [None]
  - BLOOD CULTURE POSITIVE [None]
  - DISEASE RECURRENCE [None]
  - HAEMODIALYSIS [None]
  - KLEBSIELLA INFECTION [None]
  - NEPHROBLASTOMA [None]
  - NEUTROPENIC SEPSIS [None]
  - NO THERAPEUTIC RESPONSE [None]
  - OLIGURIA [None]
  - RENAL IMPAIRMENT [None]
